FAERS Safety Report 10103259 (Version 1)
Quarter: 2014Q2

REPORT INFORMATION
  Report Type: Spontaneous
  Country: JP (occurrence: JP)
  Receive Date: 20140424
  Receipt Date: 20140424
  Transmission Date: 20141212
  Serious: Yes (Death)
  Sender: FDA-Public Use
  Company Number: JP-GLAXOSMITHKLINE-B0987230A

PATIENT
  Age: 48 Year
  Sex: 0

DRUGS (1)
  1. TYKERB [Suspect]
     Indication: GASTRIC CANCER
     Route: 048

REACTIONS (1)
  - Death [Fatal]
